FAERS Safety Report 19528851 (Version 1)
Quarter: 2021Q3

REPORT INFORMATION
  Report Type: Spontaneous
  Country: ES (occurrence: ES)
  Receive Date: 20210713
  Receipt Date: 20210713
  Transmission Date: 20211014
  Serious: Yes (Other)
  Sender: FDA-Public Use
  Company Number: ES-TEVA-2021-ES-1931191

PATIENT
  Age: 44 Year
  Sex: Female

DRUGS (7)
  1. VORICONAZOLE. [Suspect]
     Active Substance: VORICONAZOLE
     Indication: DRUG THERAPY
     Route: 065
  2. DEXAMETHASONE. [Suspect]
     Active Substance: DEXAMETHASONE
     Indication: IMMUNOSUPPRESSANT DRUG THERAPY
     Dosage: SCHEDULED FOR 3 MONTHS
     Route: 042
  3. PREDNISONE. [Suspect]
     Active Substance: PREDNISONE
     Indication: IMMUNOSUPPRESSANT DRUG THERAPY
     Dosage: SCHEDULED FOR 3 MONTHS
     Route: 048
  4. FLUCONAZOLE. [Concomitant]
     Active Substance: FLUCONAZOLE
     Indication: DRUG THERAPY
     Route: 065
  5. LINEZOLID. [Concomitant]
     Active Substance: LINEZOLID
     Indication: DRUG THERAPY
     Route: 065
  6. MEROPENEM. [Concomitant]
     Active Substance: MEROPENEM
     Indication: DRUG THERAPY
     Route: 065
  7. AMPHOTERICIN?B [Suspect]
     Active Substance: AMPHOTERICIN B
     Indication: DRUG THERAPY
     Route: 065

REACTIONS (5)
  - Cutaneous vasculitis [Unknown]
  - Cushing^s syndrome [Unknown]
  - Psychotic disorder [Unknown]
  - Partial seizures [Recovered/Resolved]
  - Acute kidney injury [Recovered/Resolved]
